FAERS Safety Report 9181454 (Version 1)
Quarter: 2013Q1

REPORT INFORMATION
  Report Type: Spontaneous
  Country: US (occurrence: None)
  Receive Date: 20130321
  Receipt Date: 20130321
  Transmission Date: 20140127
  Serious: Yes (Other)
  Sender: FDA-Public Use
  Company Number: None

PATIENT
  Age: 68 Year
  Sex: Female

DRUGS (1)
  1. LATANOPROST [Suspect]
     Dosage: 1GTT OU QD
     Dates: start: 20121201

REACTIONS (1)
  - Eye pruritus [None]
